FAERS Safety Report 20925171 (Version 1)
Quarter: 2022Q2

REPORT INFORMATION
  Report Type: Spontaneous
  Country: CZ (occurrence: CZ)
  Receive Date: 20220607
  Receipt Date: 20220607
  Transmission Date: 20220721
  Serious: Yes (Life-Threatening, Hospitalization, Other)
  Sender: FDA-Public Use
  Company Number: None

PATIENT
  Age: 64 Year
  Sex: Female

DRUGS (2)
  1. INLYTA [Suspect]
     Active Substance: AXITINIB
     Indication: Renal neoplasm
     Dosage: 5 MG EVERY 12 HOURS, FREQ:12 H;1-0-1
     Route: 048
     Dates: start: 202202, end: 202204
  2. BAVENCIO [Suspect]
     Active Substance: AVELUMAB
     Indication: Renal neoplasm
     Dosage: 800MG FOR 14 DAYS, GIVEN A TOTAL OF 4 CYCLES
     Route: 042
     Dates: start: 20220322, end: 20220504

REACTIONS (1)
  - Pneumonitis [Recovering/Resolving]

NARRATIVE: CASE EVENT DATE: 20220518
